FAERS Safety Report 19472741 (Version 3)
Quarter: 2021Q3

REPORT INFORMATION
  Report Type: Spontaneous
  Country: NG (occurrence: NG)
  Receive Date: 20210629
  Receipt Date: 20210806
  Transmission Date: 20211014
  Serious: Yes (Hospitalization, Other)
  Sender: FDA-Public Use
  Company Number: NG-AMNEAL PHARMACEUTICALS-2021-AMRX-02397

PATIENT
  Age: 16 Year
  Sex: Male

DRUGS (2)
  1. MECTIZAN [Suspect]
     Active Substance: IVERMECTIN
     Indication: PRODUCT USED FOR UNKNOWN INDICATION
     Dosage: UNK
     Route: 065
     Dates: start: 20210427
  2. ALBENZA [Suspect]
     Active Substance: ALBENDAZOLE
     Indication: PRODUCT USED FOR UNKNOWN INDICATION
     Dosage: UNK
     Route: 065
     Dates: start: 20210427

REACTIONS (13)
  - Respiratory distress [Unknown]
  - Respiratory rate increased [Unknown]
  - Red blood cell sedimentation rate increased [Unknown]
  - Rash [Unknown]
  - Memory impairment [Unknown]
  - Nasopharyngitis [Unknown]
  - Peripheral coldness [Unknown]
  - Seizure [Unknown]
  - Loss of consciousness [Unknown]
  - Cold sweat [Unknown]
  - Anal incontinence [Unknown]
  - Urinary incontinence [Unknown]
  - White blood cell count increased [Unknown]

NARRATIVE: CASE EVENT DATE: 20210429
